FAERS Safety Report 9471837 (Version 1)
Quarter: 2013Q3

REPORT INFORMATION
  Report Type: Spontaneous
  Country: FI (occurrence: FI)
  Receive Date: 20130822
  Receipt Date: 20130822
  Transmission Date: 20140515
  Serious: Yes (Other)
  Sender: FDA-Public Use
  Company Number: FI-AMGEN-FINSP2013057866

PATIENT
  Age: 68 Year
  Sex: Male

DRUGS (8)
  1. XGEVA [Suspect]
     Indication: PROSTATE CANCER
     Dosage: UNK
     Route: 065
     Dates: start: 201302
  2. KALCIPOS-D [Concomitant]
  3. SOMAC [Concomitant]
  4. PREDNISOLONE [Concomitant]
  5. DUROGESIC [Concomitant]
  6. PANADOL                            /00020001/ [Concomitant]
  7. DAKTACORT [Concomitant]
  8. PRIMPERAN [Concomitant]

REACTIONS (1)
  - Hip fracture [Unknown]
